FAERS Safety Report 8337661-0 (Version None)
Quarter: 2012Q2

REPORT INFORMATION
  Report Type: 
  Country: None (occurrence: None)
  Receive Date: 20120504
  Receipt Date: 20120504
  Transmission Date: 20120825
  Serious: Yes (Other)
  Sender: FDA-Public Use
  Company Number: None

PATIENT
  Sex: Female

DRUGS (1)
  1. PREVPAC [Suspect]
     Indication: HELICOBACTER INFECTION
     Dates: start: 20120406, end: 20120416

REACTIONS (2)
  - PRURITUS GENERALISED [None]
  - NO THERAPEUTIC RESPONSE [None]
